FAERS Safety Report 10934993 (Version 1)
Quarter: 2015Q1

REPORT INFORMATION
  Report Type: Spontaneous
  Country: NL (occurrence: NL)
  Receive Date: 20150320
  Receipt Date: 20150320
  Transmission Date: 20150721
  Serious: Yes (Hospitalization)
  Sender: FDA-Public Use
  Company Number: NL-ACTELION-A-CH2015-114460

PATIENT
  Age: 66 Year
  Sex: Female

DRUGS (1)
  1. TRACLEER [Suspect]
     Active Substance: BOSENTAN\BOSENTAN MONOHYDRATE
     Indication: RAYNAUD^S PHENOMENON
     Route: 048

REACTIONS (5)
  - Syncope [Unknown]
  - Weight decreased [Unknown]
  - Malaise [Unknown]
  - Haematemesis [Unknown]
  - Haemoglobin decreased [Unknown]
